FAERS Safety Report 7670236-5 (Version None)
Quarter: 2011Q3

REPORT INFORMATION
  Report Type: 
  Country: None (occurrence: None)
  Receive Date: 20110808
  Receipt Date: 20110614
  Transmission Date: 20111222
  Serious: No
  Sender: FDA-Public Use
  Company Number: US-BAYER-2011-051844

PATIENT
  Sex: Female

DRUGS (4)
  1. ASPIRIN [Suspect]
     Indication: HEADACHE
  2. ASPIRIN [Suspect]
     Indication: TOOTHACHE
     Dosage: DAILY DOSE 2 DF
     Route: 048
  3. ALEVE (CAPLET) [Suspect]
     Indication: TOOTHACHE
     Dosage: DAILY DOSE 660 MG
     Route: 048
  4. ALEVE (CAPLET) [Suspect]
     Indication: HEADACHE

REACTIONS (2)
  - TOOTHACHE [None]
  - HEADACHE [None]
